FAERS Safety Report 26058404 (Version 1)
Quarter: 2025Q4

REPORT INFORMATION
  Report Type: Spontaneous
  Country: EU (occurrence: EU)
  Receive Date: 20251118
  Receipt Date: 20251118
  Transmission Date: 20260119
  Serious: Yes (Hospitalization)
  Sender: BANNER
  Company Number: None

PATIENT
  Age: 64 Year
  Sex: Female

DRUGS (2)
  1. IBUPROFEN [Suspect]
     Active Substance: IBUPROFEN
     Indication: Herpes zoster
     Route: 048
     Dates: start: 202510, end: 202510
  2. ACYCLOVIR [Suspect]
     Active Substance: ACYCLOVIR
     Indication: Herpes zoster
     Route: 048
     Dates: start: 202510, end: 202510

REACTIONS (1)
  - Erythema [Recovered/Resolved]

NARRATIVE: CASE EVENT DATE: 20251001
